FAERS Safety Report 14629670 (Version 1)
Quarter: 2018Q1

REPORT INFORMATION
  Report Type: Spontaneous
  Country: US (occurrence: US)
  Receive Date: 20180313
  Receipt Date: 20180313
  Transmission Date: 20180509
  Serious: No
  Sender: FDA-Public Use
  Company Number: US-TEVA-797107USA

PATIENT

DRUGS (1)
  1. PRIMIDONE. [Suspect]
     Active Substance: PRIMIDONE

REACTIONS (2)
  - Drug effect variable [Unknown]
  - Product quality issue [Unknown]
